FAERS Safety Report 8970258 (Version 1)
Quarter: 2012Q4

REPORT INFORMATION
  Report Type: 
  Country: US (occurrence: US)
  Receive Date: 20121218
  Receipt Date: 20121218
  Transmission Date: 20130627
  Serious: No
  Sender: FDA-Public Use
  Company Number: US-BRISTOL-MYERS SQUIBB COMPANY-16492738

PATIENT
  Age: 67 Year
  Sex: Female

DRUGS (3)
  1. ABILIFY [Suspect]
     Dosage: dose reduced from 15mg/day to 10mg/day from 13Feb12-20Feb12
     Dates: start: 201101, end: 20120220
  2. EFFEXOR [Concomitant]
  3. BUSPIRONE [Concomitant]

REACTIONS (1)
  - Tardive dyskinesia [Unknown]
